FAERS Safety Report 5267277-4 (Version None)
Quarter: 2007Q1

REPORT INFORMATION
  Report Type: 
  Country: None (occurrence: None)
  Receive Date: 20070316
  Receipt Date: 20070313
  Transmission Date: 20070707
  Serious: Yes (Other)
  Sender: FDA-Public Use
  Company Number: US-GLAXOSMITHKLINE-A0643290A

PATIENT
  Sex: Male
  Weight: 2.7 kg

DRUGS (2)
  1. BUPROPION HCL [Suspect]
     Indication: MAJOR DEPRESSION
     Dosage: 300MG PER DAY
  2. CELEXA [Concomitant]

REACTIONS (2)
  - DRUG EXPOSURE DURING PREGNANCY [None]
  - TRISOMY 21 [None]
